FAERS Safety Report 9142581 (Version 2)
Quarter: 2013Q2

REPORT INFORMATION
  Report Type: Spontaneous
  Country: US (occurrence: US)
  Receive Date: 20130306
  Receipt Date: 20130614
  Transmission Date: 20140414
  Serious: No
  Sender: FDA-Public Use
  Company Number: US-JNJFOC-20130212081

PATIENT
  Sex: Female

DRUGS (3)
  1. DURAGESIC [Suspect]
     Indication: PAIN
     Dosage: 100 AND 25  DURAGESIC PATCH WAS USED
     Route: 062
  2. DURAGESIC [Suspect]
     Indication: PAIN
     Dosage: 100+25  DURAGESIC PATCH WAS USED
     Route: 062
     Dates: start: 20130223, end: 20130323
  3. FIORICET [Concomitant]
     Indication: HEADACHE
     Route: 048

REACTIONS (4)
  - Drug ineffective [Recovered/Resolved]
  - Drug dose omission [Recovered/Resolved]
  - Product adhesion issue [Unknown]
  - Product quality issue [Unknown]
